FAERS Safety Report 4525035-X (Version None)
Quarter: 2004Q4

REPORT INFORMATION
  Report Type: 
  Country: None (occurrence: None)
  Receive Date: 20041213
  Receipt Date: 20041018
  Transmission Date: 20050328
  Serious: Yes (Life-Threatening, Hospitalization)
  Sender: FDA-Public Use
  Company Number: US-2004-BP-10283BP

PATIENT
  Age: 73 Year
  Sex: Male
  Weight: 100.24 kg

DRUGS (10)
  1. SPIRIVA [Suspect]
     Route: 055
     Dates: start: 20040901
  2. SPIRIVA [Suspect]
     Indication: EMPHYSEMA
  3. SPIRIVA [Suspect]
  4. VERAPAMIL [Concomitant]
  5. DIGITALIS [Concomitant]
  6. COUMADIN [Concomitant]
  7. PULMICORT [Concomitant]
     Route: 055
  8. LIQUID OXYGEN (WITH EXERTION) [Concomitant]
     Route: 045
  9. CLARINEX [Concomitant]
  10. NASACORT [Concomitant]

REACTIONS (4)
  - BLISTER [None]
  - DRUG INEFFECTIVE [None]
  - OEDEMA PERIPHERAL [None]
  - SKIN ULCER [None]
